FAERS Safety Report 19057011 (Version 1)
Quarter: 2021Q1

REPORT INFORMATION
  Report Type: Spontaneous
  Country: US (occurrence: US)
  Receive Date: 20210325
  Receipt Date: 20210325
  Transmission Date: 20210420
  Serious: No
  Sender: FDA-Public Use
  Company Number: US-GILEAD-2021-0522478

PATIENT

DRUGS (1)
  1. LETAIRIS [Suspect]
     Active Substance: AMBRISENTAN
     Indication: PULMONARY ARTERIAL HYPERTENSION
     Dosage: UNK
     Route: 050

REACTIONS (3)
  - Off label use [Not Recovered/Not Resolved]
  - Feeding tube user [Not Recovered/Not Resolved]
  - General physical health deterioration [Not Recovered/Not Resolved]
